FAERS Safety Report 15572815 (Version 4)
Quarter: 2018Q4

REPORT INFORMATION
  Report Type: Report from Study
  Country: US (occurrence: US)
  Receive Date: 20181031
  Receipt Date: 20181223
  Transmission Date: 20190205
  Serious: Yes (Hospitalization)
  Sender: FDA-Public Use
  Company Number: US-ACTELION-A-NJ2018-179577

PATIENT
  Age: 72 Year
  Sex: Female

DRUGS (6)
  1. OPSUMIT [Suspect]
     Active Substance: MACITENTAN
     Indication: PULMONARY ARTERIAL HYPERTENSION
     Dosage: 10 MG, QD
     Route: 048
     Dates: start: 20180419, end: 20181128
  2. UPTRAVI [Suspect]
     Active Substance: SELEXIPAG
     Indication: PULMONARY ARTERIAL HYPERTENSION
     Dosage: 200 MCG, BID
     Route: 048
     Dates: start: 20181029, end: 201812
  3. UPTRAVI [Suspect]
     Active Substance: SELEXIPAG
     Dosage: 400 MCG, BID
     Route: 048
     Dates: start: 20161027, end: 20181021
  4. UPTRAVI [Suspect]
     Active Substance: SELEXIPAG
     Dosage: 200 MCG, BID
     Route: 048
     Dates: start: 20180907
  5. UPTRAVI [Suspect]
     Active Substance: SELEXIPAG
     Dosage: 200 MCG, QPM
     Route: 048
     Dates: start: 20180925
  6. TADALAFIL. [Concomitant]
     Active Substance: TADALAFIL
     Dosage: 20 MG, BID
     Route: 048
     Dates: start: 20180812

REACTIONS (25)
  - Pain [Unknown]
  - Condition aggravated [Unknown]
  - Discomfort [Unknown]
  - Pain in extremity [Unknown]
  - Malaise [Unknown]
  - Muscular weakness [Unknown]
  - Chest discomfort [Unknown]
  - Fatigue [Unknown]
  - Oral pain [Unknown]
  - Product dose omission [Recovered/Resolved]
  - Diarrhoea [Unknown]
  - Wheezing [Unknown]
  - Pruritus [Unknown]
  - Tremor [Unknown]
  - General physical health deterioration [Unknown]
  - Ear pain [Unknown]
  - Headache [Unknown]
  - Cough [Unknown]
  - Diuretic therapy [Unknown]
  - Restlessness [Unknown]
  - Pain in jaw [Unknown]
  - Pharyngeal oedema [Unknown]
  - Dysphonia [Unknown]
  - Arthralgia [Unknown]
  - Hospice care [Recovered/Resolved]

NARRATIVE: CASE EVENT DATE: 201809
